FAERS Safety Report 19046841 (Version 1)
Quarter: 2021Q1

REPORT INFORMATION
  Report Type: Spontaneous
  Country: DE (occurrence: DE)
  Receive Date: 20210323
  Receipt Date: 20210323
  Transmission Date: 20210420
  Serious: Yes (Other)
  Sender: FDA-Public Use
  Company Number: DE-TORRENT-00019907

PATIENT
  Age: 80 Year
  Sex: Male

DRUGS (1)
  1. CLOPIDOGREL [Suspect]
     Active Substance: CLOPIDOGREL BISULFATE
     Indication: ANTIPLATELET THERAPY
     Dosage: UNKNOWN

REACTIONS (4)
  - Visual impairment [Unknown]
  - Eye haemorrhage [Unknown]
  - Neovascular age-related macular degeneration [Unknown]
  - Retinal disorder [Unknown]

NARRATIVE: CASE EVENT DATE: 20210111
